FAERS Safety Report 5311700-3 (Version None)
Quarter: 2007Q2

REPORT INFORMATION
  Report Type: 
  Country: None (occurrence: None)
  Receive Date: 20070426
  Receipt Date: 20070426
  Transmission Date: 20071010
  Serious: Yes (Hospitalization, Other)
  Sender: FDA-Public Use
  Company Number: None

PATIENT
  Age: 75 Year
  Sex: Female

DRUGS (11)
  1. PHOSPHOSODA FLAVER NOT SPECIFIED [Suspect]
     Indication: COLONOSCOPY
     Dosage: 45 ML X1 PO
     Route: 048
     Dates: start: 20041003, end: 20041003
  2. FLEET PREP KIT 1 [Suspect]
     Dosage: 20 MG QID PO
     Route: 048
     Dates: start: 20041017, end: 20041017
  3. NORVASC [Concomitant]
  4. FOSAMAX [Concomitant]
  5. LIPITOR [Concomitant]
  6. DIOVAN [Concomitant]
  7. CEFPROZIL [Concomitant]
  8. COREG [Concomitant]
  9. PROCRIT [Concomitant]
  10. TIMOLOL MALEATE [Concomitant]
  11. ALTACE [Concomitant]

REACTIONS (10)
  - ANAEMIA [None]
  - ARTERIAL DISORDER [None]
  - BIOPSY KIDNEY ABNORMAL [None]
  - DISCOMFORT [None]
  - DRUG TOXICITY [None]
  - ISCHAEMIA [None]
  - NEPHRITIS INTERSTITIAL [None]
  - RENAL FAILURE ACUTE [None]
  - RENAL FAILURE CHRONIC [None]
  - RENAL TUBULAR NECROSIS [None]
